FAERS Safety Report 26057530 (Version 1)
Quarter: 2025Q4

REPORT INFORMATION
  Report Type: Spontaneous
  Country: US (occurrence: None)
  Receive Date: 20251118
  Receipt Date: 20251118
  Transmission Date: 20260117
  Serious: No
  Sender: UCB
  Company Number: US-UCBSA-2024068309

PATIENT
  Age: 41 Year

DRUGS (2)
  1. LEVETIRACETAM [Suspect]
     Active Substance: LEVETIRACETAM
     Indication: Temporal lobe epilepsy
  2. LACOSAMIDE [Suspect]
     Active Substance: LACOSAMIDE
     Indication: Temporal lobe epilepsy

REACTIONS (1)
  - Multiple-drug resistance [Unknown]
